FAERS Safety Report 11591234 (Version 1)
Quarter: 2015Q4

REPORT INFORMATION
  Report Type: Spontaneous
  Country: GB (occurrence: GB)
  Receive Date: 20151004
  Receipt Date: 20151004
  Transmission Date: 20160304
  Serious: Yes (Death, Other)
  Sender: FDA-Public Use
  Company Number: GB-TEVA-595919ACC

PATIENT
  Age: 83 Year
  Sex: Female
  Weight: 54.9 kg

DRUGS (7)
  1. WARFARIN [Suspect]
     Active Substance: WARFARIN
     Indication: MITRAL VALVE REPLACEMENT
     Route: 048
     Dates: start: 1999, end: 20150824
  2. DIGOXIN. [Concomitant]
     Active Substance: DIGOXIN
  3. INDAPAMIDE. [Concomitant]
     Active Substance: INDAPAMIDE
  4. BACLOFEN. [Concomitant]
     Active Substance: BACLOFEN
     Dosage: 15 MILLIGRAM DAILY;
  5. PERINDOPRIL [Concomitant]
     Active Substance: PERINDOPRIL
  6. NUTRITIONAL SUPPLEMENT [Concomitant]
     Active Substance: DIETARY SUPPLEMENT
  7. LACTULOSE SOLUTION [Concomitant]

REACTIONS (2)
  - Circulatory collapse [Not Recovered/Not Resolved]
  - Gastrointestinal haemorrhage [Fatal]

NARRATIVE: CASE EVENT DATE: 20150824
